FAERS Safety Report 6123042-7 (Version None)
Quarter: 2009Q1

REPORT INFORMATION
  Report Type: 
  Country: None (occurrence: None)
  Receive Date: 20090318
  Receipt Date: 20080213
  Transmission Date: 20090719
  Serious: No
  Sender: FDA-Public Use
  Company Number: US-AMGEN-KDL265296

PATIENT
  Sex: Female

DRUGS (2)
  1. NEULASTA [Suspect]
     Indication: CHEMOTHERAPY
     Route: 058
     Dates: start: 20080210
  2. RADIATION THERAPY [Concomitant]

REACTIONS (2)
  - DRUG INEFFECTIVE [None]
  - HAEMOGLOBIN DECREASED [None]
